FAERS Safety Report 13127595 (Version 1)
Quarter: 2017Q1

REPORT INFORMATION
  Report Type: Spontaneous
  Country: US (occurrence: US)
  Receive Date: 20170118
  Receipt Date: 20170118
  Transmission Date: 20170428
  Serious: No
  Sender: FDA-Public Use
  Company Number: GXBR2016US003414

PATIENT
  Sex: Female

DRUGS (1)
  1. GLATOPA [Suspect]
     Active Substance: GLATIRAMER ACETATE
     Indication: PRODUCT USED FOR UNKNOWN INDICATION
     Dosage: UNK DF, UNK
     Route: 065

REACTIONS (7)
  - Urticaria [Unknown]
  - Dyspnoea [Unknown]
  - Dizziness [Unknown]
  - Flushing [Unknown]
  - Vomiting [Unknown]
  - Throat tightness [Unknown]
  - Back pain [Unknown]
